FAERS Safety Report 5659879-8 (Version None)
Quarter: 2008Q1

REPORT INFORMATION
  Report Type: 
  Country: None (occurrence: None)
  Receive Date: 20080311
  Receipt Date: 20070806
  Transmission Date: 20080703
  Serious: No
  Sender: FDA-Public Use
  Company Number: US-BAYER-200712523BCC

PATIENT
  Age: 24 Year
  Sex: Female
  Weight: 91 kg

DRUGS (1)
  1. ALEVE LIQUID GEL [Suspect]
     Indication: INTENTIONAL SELF-INJURY
     Dosage: TOTAL DAILY DOSE: 2420 MG  UNIT DOSE: 220 MG
     Route: 048
     Dates: start: 20070806

REACTIONS (1)
  - NAUSEA [None]
